FAERS Safety Report 4403607-0 (Version None)
Quarter: 2004Q3

REPORT INFORMATION
  Report Type: 
  Country: None (occurrence: None)
  Receive Date: 20040721
  Receipt Date: 20040715
  Transmission Date: 20050211
  Serious: Yes (Disabling)
  Sender: FDA-Public Use
  Company Number: PHEH2004US07631

PATIENT
  Age: 45 Year
  Sex: Female

DRUGS (1)
  1. LAMISIL [Suspect]
     Indication: TINEA INFECTION
     Route: 048
     Dates: start: 20040601, end: 20040618

REACTIONS (1)
  - CYSTITIS [None]
